FAERS Safety Report 22250775 (Version 1)
Quarter: 2023Q2

REPORT INFORMATION
  Report Type: Spontaneous
  Country: ES (occurrence: ES)
  Receive Date: 20230425
  Receipt Date: 20230425
  Transmission Date: 20230722
  Serious: Yes (Other)
  Sender: FDA-Public Use
  Company Number: None

PATIENT
  Age: 47 Year
  Sex: Male

DRUGS (3)
  1. METFORMIN [Suspect]
     Active Substance: METFORMIN HYDROCHLORIDE
     Indication: Suicide attempt
     Dosage: 1000 MG, Q12H
     Route: 048
     Dates: start: 20230101
  2. METFORMIN [Suspect]
     Active Substance: METFORMIN HYDROCHLORIDE
     Indication: Diabetes mellitus
     Dosage: 7 G (TOTAL, 7 COMPRIMIDOS (7000 MG) EN UNA SOLA TOMA, 30 TABLETS)
     Route: 048
     Dates: start: 20230408, end: 20230408
  3. FENOFIBRATE\PRAVASTATIN [Concomitant]
     Active Substance: FENOFIBRATE\PRAVASTATIN
     Indication: Dyslipidaemia
     Dosage: 1 DOSAGE FORM, Q24H
     Route: 048
     Dates: start: 20180606

REACTIONS (1)
  - Hyperlactacidaemia [Recovering/Resolving]

NARRATIVE: CASE EVENT DATE: 20230408
